FAERS Safety Report 14978104 (Version 1)
Quarter: 2018Q2

REPORT INFORMATION
  Report Type: Spontaneous
  Country: US (occurrence: US)
  Receive Date: 20180606
  Receipt Date: 20180606
  Transmission Date: 20180711
  Serious: No
  Sender: FDA-Public Use
  Company Number: US-PFIZER INC-2018228987

PATIENT

DRUGS (1)
  1. AROMASIN [Suspect]
     Active Substance: EXEMESTANE
     Dosage: UNK

REACTIONS (2)
  - Bone pain [Unknown]
  - Hot flush [Unknown]
